FAERS Safety Report 9354558 (Version 2)
Quarter: 2013Q4

REPORT INFORMATION
  Report Type: Spontaneous
  Country: US (occurrence: US)
  Receive Date: 20130618
  Receipt Date: 20131016
  Transmission Date: 20140711
  Serious: No
  Sender: FDA-Public Use
  Company Number: US-PFIZER INC-2013179676

PATIENT
  Age: 57 Year
  Sex: Female
  Weight: 76.19 kg

DRUGS (2)
  1. EFFEXOR XR [Suspect]
     Indication: DEPRESSION
     Dosage: 150 MG, 1X/DAY
  2. EFFEXOR XR [Suspect]
     Indication: ANXIETY

REACTIONS (3)
  - Dermatitis contact [Unknown]
  - Pruritus [Unknown]
  - Scratch [Unknown]
